FAERS Safety Report 24917032 (Version 1)
Quarter: 2025Q1

REPORT INFORMATION
  Report Type: Report from Study
  Country: IN (occurrence: IN)
  Receive Date: 20250203
  Receipt Date: 20250203
  Transmission Date: 20250409
  Serious: Yes (Death)
  Sender: ROCHE
  Company Number: IN-ROCHE-10000193439

PATIENT
  Age: 72 Year
  Sex: Male

DRUGS (4)
  1. TECENTRIQ [Suspect]
     Active Substance: ATEZOLIZUMAB
     Indication: Hepatocellular carcinoma
     Route: 040
     Dates: start: 20240828
  2. TECENTRIQ [Suspect]
     Active Substance: ATEZOLIZUMAB
     Indication: Liver disorder
  3. AVASTIN [Suspect]
     Active Substance: BEVACIZUMAB
     Indication: Hepatocellular carcinoma
     Route: 040
     Dates: start: 20240828
  4. AVASTIN [Suspect]
     Active Substance: BEVACIZUMAB
     Indication: Liver disorder

REACTIONS (3)
  - Multiple organ dysfunction syndrome [Fatal]
  - Abdominal distension [Unknown]
  - Decreased appetite [Unknown]

NARRATIVE: CASE EVENT DATE: 20241222
